FAERS Safety Report 10098588 (Version 1)
Quarter: 2014Q2

REPORT INFORMATION
  Report Type: Spontaneous
  Country: US (occurrence: None)
  Receive Date: 20140422
  Receipt Date: 20140422
  Transmission Date: 20141212
  Serious: No
  Sender: FDA-Public Use
  Company Number: None

PATIENT
  Age: 42 Year
  Sex: Male
  Weight: 93.9 kg

DRUGS (2)
  1. BREVITAL [Suspect]
     Indication: ANAESTHESIA PROCEDURE
     Route: 042
     Dates: start: 20140418, end: 20140418
  2. BREVITAL [Suspect]
     Indication: ELECTROCONVULSIVE THERAPY
     Route: 042
     Dates: start: 20140418, end: 20140418

REACTIONS (1)
  - Drug effect decreased [None]
